FAERS Safety Report 14151834 (Version 1)
Quarter: 2017Q4

REPORT INFORMATION
  Report Type: Spontaneous
  Country: US (occurrence: None)
  Receive Date: 20171101
  Receipt Date: 20171101
  Transmission Date: 20180321
  Serious: No
  Sender: FDA-Public Use
  Company Number: None

PATIENT
  Age: 65 Year
  Sex: Female

DRUGS (1)
  1. SERTRALINE [Suspect]
     Active Substance: SERTRALINE HYDROCHLORIDE
     Route: 048
     Dates: start: 20170908, end: 20171031

REACTIONS (4)
  - Product physical issue [None]
  - Product use complaint [None]
  - Throat irritation [None]
  - Product solubility abnormal [None]

NARRATIVE: CASE EVENT DATE: 20171101
